FAERS Safety Report 23232408 (Version 2)
Quarter: 2023Q4

REPORT INFORMATION
  Report Type: Spontaneous
  Country: CN (occurrence: None)
  Receive Date: 20231128
  Receipt Date: 20231208
  Transmission Date: 20240109
  Serious: Yes (Other)
  Sender: FDA-Public Use
  Company Number: CN-ROCHE-3460705

PATIENT

DRUGS (4)
  1. COLUMVI [Suspect]
     Active Substance: GLOFITAMAB-GXBM
     Indication: Diffuse large B-cell lymphoma
     Dosage: C1D8
     Route: 042
  2. COLUMVI [Suspect]
     Active Substance: GLOFITAMAB-GXBM
     Dosage: C1D15
     Route: 042
  3. COLUMVI [Suspect]
     Active Substance: GLOFITAMAB-GXBM
     Dosage: C1D1-C12D1
     Route: 042
  4. GAZYVA [Suspect]
     Active Substance: OBINUTUZUMAB
     Indication: Diffuse large B-cell lymphoma
     Dosage: C1D1
     Route: 042

REACTIONS (20)
  - Anaemia [Unknown]
  - White blood cell count decreased [Unknown]
  - Neutropenia [Unknown]
  - Thrombocytopenia [Unknown]
  - Hypoalbuminaemia [Unknown]
  - Pyrexia [Unknown]
  - Alanine aminotransferase increased [Unknown]
  - Lymphocyte count decreased [Unknown]
  - Aspartate aminotransferase increased [Unknown]
  - C-reactive protein increased [Unknown]
  - Hypertriglyceridaemia [Unknown]
  - Hypocalcaemia [Unknown]
  - Cytokine increased [Unknown]
  - Hypertension [Unknown]
  - Infusion related reaction [Unknown]
  - Infection [Unknown]
  - Cytokine release syndrome [Unknown]
  - Herpes zoster [Unknown]
  - Nervous system disorder [Unknown]
  - Blood bilirubin increased [Unknown]
